FAERS Safety Report 15328322 (Version 1)
Quarter: 2018Q3

REPORT INFORMATION
  Report Type: Spontaneous
  Country: US (occurrence: US)
  Receive Date: 20180829
  Receipt Date: 20180829
  Transmission Date: 20181010
  Serious: Yes (Hospitalization)
  Sender: FDA-Public Use
  Company Number: US-COLGATE PALMOLIVE COMPANY-20180801963

PATIENT

DRUGS (14)
  1. VELETRI [Suspect]
     Active Substance: EPOPROSTENOL
     Indication: PULMONARY ARTERIAL HYPERTENSION
     Dosage: 1 PER MINUTE
     Route: 042
  2. UPTRAVI [Concomitant]
     Active Substance: SELEXIPAG
  3. ADCIRCA [Suspect]
     Active Substance: TADALAFIL
     Indication: PULMONARY HYPERTENSION
     Dosage: 40 MILLIGRAM, QD
     Route: 065
     Dates: start: 20180224
  4. VELETRI [Suspect]
     Active Substance: EPOPROSTENOL
     Dosage: 1 PER MINUTE
     Route: 042
     Dates: start: 20180201
  5. BACTRIM [Concomitant]
     Active Substance: SULFAMETHOXAZOLE\TRIMETHOPRIM
  6. CHLORHEXIDINE GLUCONATE UNSPECIFIED [Suspect]
     Active Substance: CHLORHEXIDINE GLUCONATE
     Indication: PRODUCT USED FOR UNKNOWN INDICATION
     Route: 065
  7. SPIRONOLACTONE. [Concomitant]
     Active Substance: SPIRONOLACTONE
  8. LASIX [Concomitant]
     Active Substance: FUROSEMIDE
  9. KEFLEX [Concomitant]
     Active Substance: CEPHALEXIN
  10. LINEZOLID. [Concomitant]
     Active Substance: LINEZOLID
  11. VELETRI [Suspect]
     Active Substance: EPOPROSTENOL
     Dosage: 14 MILLIGRAM/KILOGRAM, 1 PER MINUTE
     Dates: start: 20170810
  12. PANTOPRAZOLE [Concomitant]
     Active Substance: PANTOPRAZOLE
  13. LETAIRIS [Suspect]
     Active Substance: AMBRISENTAN
     Indication: PULMONARY ARTERIAL HYPERTENSION
     Dosage: 10 MILLIGRAM, QD
     Route: 048
     Dates: start: 20170812
  14. ASPIRIN                            /00002701/ [Concomitant]
     Active Substance: ASPIRIN

REACTIONS (25)
  - Device related infection [Recovered/Resolved]
  - Rash [Unknown]
  - Headache [Unknown]
  - Hypersensitivity [Unknown]
  - Flushing [Recovered/Resolved]
  - Wound [Unknown]
  - Dyspnoea [Not Recovered/Not Resolved]
  - Catheter site rash [Unknown]
  - Sepsis [Recovered/Resolved]
  - Application site irritation [Unknown]
  - Catheter site inflammation [Unknown]
  - Catheter management [Unknown]
  - Platelet count decreased [Unknown]
  - Wound infection [None]
  - Catheter site erythema [Recovered/Resolved]
  - Haemoglobin decreased [Unknown]
  - Pain in jaw [Recovered/Resolved]
  - Peripheral swelling [Not Recovered/Not Resolved]
  - Chills [Recovered/Resolved]
  - Joint swelling [Not Recovered/Not Resolved]
  - Fluid overload [Unknown]
  - Pain in extremity [Recovered/Resolved]
  - Cellulitis [Recovered/Resolved]
  - Fatigue [Unknown]
  - Drug ineffective [Not Recovered/Not Resolved]

NARRATIVE: CASE EVENT DATE: 20180215
